FAERS Safety Report 16229747 (Version 6)
Quarter: 2020Q4

REPORT INFORMATION
  Report Type: Spontaneous
  Country: US (occurrence: US)
  Receive Date: 20190423
  Receipt Date: 20201112
  Transmission Date: 20210113
  Serious: Yes (Other)
  Sender: FDA-Public Use
  Company Number: US-GILEAD-2019-0402590

PATIENT
  Age: 36 Year
  Sex: Male
  Weight: 68.03 kg

DRUGS (35)
  1. EPZICOM [Concomitant]
     Active Substance: ABACAVIR SULFATE\LAMIVUDINE
  2. NORVIR [Concomitant]
     Active Substance: RITONAVIR
  3. PERCOCET [Concomitant]
     Active Substance: ACETAMINOPHEN\OXYCODONE HYDROCHLORIDE
  4. VITAMIN B COMPLEX [Concomitant]
     Active Substance: CYANOCOBALAMIN\DEXPANTHENOL\NIACINAMIDE\PYRIDOXINE HYDROCHLORIDE\RIBOFLAVIN 5^-PHOSPHATE SODIUM\THIAMINE HYDROCHLORIDE\VITAMIN B COMPLEX
  5. DESCOVY [Concomitant]
     Active Substance: EMTRICITABINE\TENOFOVIR ALAFENAMIDE FUMARATE
  6. MITOMYCIN C [Concomitant]
     Active Substance: MITOMYCIN
  7. SUSTIVA [Concomitant]
     Active Substance: EFAVIRENZ
  8. XELODA [Concomitant]
     Active Substance: CAPECITABINE
  9. GRANISETRON [Concomitant]
     Active Substance: GRANISETRON
  10. TRUVADA [Suspect]
     Active Substance: EMTRICITABINE\TENOFOVIR DISOPROXIL FUMARATE
     Indication: HIV INFECTION
     Dosage: UNK
     Route: 065
     Dates: start: 200504, end: 20161121
  11. PREZISTA [Concomitant]
     Active Substance: DARUNAVIR ETHANOLATE
  12. ZITHROMAX [Concomitant]
     Active Substance: AZITHROMYCIN DIHYDRATE
  13. ZOFRAN [Concomitant]
     Active Substance: ONDANSETRON HYDROCHLORIDE
  14. HYDROCODONE [Concomitant]
     Active Substance: HYDROCODONE
  15. TRUVADA [Suspect]
     Active Substance: EMTRICITABINE\TENOFOVIR DISOPROXIL FUMARATE
     Indication: ACQUIRED IMMUNODEFICIENCY SYNDROME
     Dosage: UNK
     Route: 048
     Dates: start: 20050323, end: 20161121
  16. ASPIRIN [ACETYLSALICYLIC ACID] [Concomitant]
     Active Substance: ASPIRIN
  17. BACTRIM [Concomitant]
     Active Substance: SULFAMETHOXAZOLE\TRIMETHOPRIM
  18. DEXAMETHASONE. [Concomitant]
     Active Substance: DEXAMETHASONE
  19. TIVICAY [Concomitant]
     Active Substance: DOLUTEGRAVIR SODIUM
  20. LIPOSOMAL DOXORUBICIN HCL [Concomitant]
     Active Substance: DOXORUBICIN HYDROCHLORIDE
  21. FENTANYL. [Concomitant]
     Active Substance: FENTANYL
  22. LEXIVA [Concomitant]
     Active Substance: FOSAMPRENAVIR CALCIUM
  23. REYATAZ [Concomitant]
     Active Substance: ATAZANAVIR SULFATE
  24. ZIAGEN [Concomitant]
     Active Substance: ABACAVIR SULFATE
  25. MEGACE [Concomitant]
     Active Substance: MEGESTROL ACETATE
  26. ACETAMINOPHEN. [Concomitant]
     Active Substance: ACETAMINOPHEN
  27. AMOXICILLIN. [Concomitant]
     Active Substance: AMOXICILLIN
  28. VIDEX EC [Concomitant]
     Active Substance: DIDANOSINE
  29. XANAX [Concomitant]
     Active Substance: ALPRAZOLAM
  30. MITOMYCIN. [Concomitant]
     Active Substance: MITOMYCIN
  31. AMBIEN [Concomitant]
     Active Substance: ZOLPIDEM TARTRATE
  32. MARINOL [Concomitant]
     Active Substance: DRONABINOL
  33. STRIBILD [Suspect]
     Active Substance: COBICISTAT\ELVITEGRAVIR\EMTRICITABINE\TENOFOVIR DISOPROXIL FUMARATE
     Indication: HIV INFECTION
     Dosage: UNK
     Route: 048
     Dates: start: 2016, end: 2017
  34. VIREAD [Suspect]
     Active Substance: TENOFOVIR DISOPROXIL FUMARATE
     Indication: HIV INFECTION
     Dosage: UNK
     Route: 065
     Dates: start: 20050330, end: 20050419
  35. VALTREX [Concomitant]
     Active Substance: VALACYCLOVIR HYDROCHLORIDE

REACTIONS (17)
  - Haematuria [Not Recovered/Not Resolved]
  - Blood calcium decreased [Not Recovered/Not Resolved]
  - Anxiety [Not Recovered/Not Resolved]
  - Renal failure [Unknown]
  - Renal impairment [Not Recovered/Not Resolved]
  - Emotional distress [Recovered/Resolved]
  - Acute kidney injury [Not Recovered/Not Resolved]
  - Joint dislocation [Unknown]
  - Vitamin D deficiency [Not Recovered/Not Resolved]
  - Economic problem [Not Recovered/Not Resolved]
  - Pain [Recovered/Resolved]
  - Chronic kidney disease [Unknown]
  - HIV infection [Unknown]
  - Proteinuria [Not Recovered/Not Resolved]
  - Neuropathy peripheral [Unknown]
  - Bone density decreased [Not Recovered/Not Resolved]
  - Anhedonia [Not Recovered/Not Resolved]

NARRATIVE: CASE EVENT DATE: 20071207
